FAERS Safety Report 22529403 (Version 1)
Quarter: 2023Q2

REPORT INFORMATION
  Report Type: Other
  Country: ZA (occurrence: None)
  Receive Date: 20230607
  Receipt Date: 20230607
  Transmission Date: 20230721
  Serious: Yes (Other)
  Sender: FDA-Public Use
  Company Number: ZA-ROCHE-3360768

PATIENT
  Age: 36 Year
  Sex: Female

DRUGS (1)
  1. OCREVUS [Suspect]
     Active Substance: OCRELIZUMAB
     Indication: Multiple sclerosis
     Dosage: 600 MG EVERY 6 MONTHS
     Route: 041
     Dates: start: 20220530

REACTIONS (5)
  - Demyelination [Unknown]
  - Multiple sclerosis [Unknown]
  - Dilatation ventricular [Unknown]
  - Myelopathy [Unknown]
  - Atrophy [Unknown]
